FAERS Safety Report 23909735 (Version 2)
Quarter: 2024Q2

REPORT INFORMATION
  Report Type: Spontaneous
  Country: US (occurrence: US)
  Receive Date: 20240528
  Receipt Date: 20240626
  Transmission Date: 20240716
  Serious: No
  Sender: FDA-Public Use
  Company Number: US-BAYER-2024A074850

PATIENT
  Age: 44 Year
  Sex: Female

DRUGS (1)
  1. CLIMARA PRO [Suspect]
     Active Substance: ESTRADIOL\LEVONORGESTREL
     Indication: Hormone replacement therapy
     Dosage: UNK
     Route: 062
     Dates: start: 2022, end: 20240517

REACTIONS (4)
  - Product quality issue [None]
  - Device adhesion issue [None]
  - Device ineffective [None]
  - Headache [None]

NARRATIVE: CASE EVENT DATE: 20240520
